FAERS Safety Report 23361665 (Version 1)
Quarter: 2024Q1

REPORT INFORMATION
  Report Type: Spontaneous
  Country: US (occurrence: None)
  Receive Date: 20240102
  Receipt Date: 20240102
  Transmission Date: 20240410
  Serious: No
  Sender: FDA-Public Use
  Company Number: None

PATIENT
  Age: 63 Year
  Sex: 0

DRUGS (3)
  1. PRALUENT [Suspect]
     Active Substance: ALIROCUMAB
  2. BERBERINE [Concomitant]
     Active Substance: BERBERINE
  3. RITUXAN [Concomitant]
     Active Substance: RITUXIMAB

REACTIONS (3)
  - Injection site discolouration [None]
  - Injection site mass [None]
  - COVID-19 [None]

NARRATIVE: CASE EVENT DATE: 20240102
